FAERS Safety Report 5397691-8 (Version None)
Quarter: 2007Q3

REPORT INFORMATION
  Report Type: 
  Country: None (occurrence: None)
  Receive Date: 20070723
  Receipt Date: 20070723
  Transmission Date: 20080115
  Serious: Yes (Hospitalization)
  Sender: FDA-Public Use
  Company Number: None

PATIENT
  Sex: Male
  Weight: 106 kg

DRUGS (6)
  1. SUNITINIB [Suspect]
     Indication: RENAL CANCER METASTATIC
     Dosage: 50 MG DAILY X 28 DAYS PO
     Route: 048
     Dates: start: 20070511, end: 20070619
  2. TYLENOL EXTRA STRENGTH [Concomitant]
  3. ASPIRIN [Concomitant]
  4. TOPROL-XL [Concomitant]
  5. GLUCOSAMINE [Concomitant]
  6. MULTI-VITAMIN [Concomitant]

REACTIONS (1)
  - PULMONARY EMBOLISM [None]
